FAERS Safety Report 6421915-9 (Version None)
Quarter: 2009Q4

REPORT INFORMATION
  Report Type: 
  Country: None (occurrence: None)
  Receive Date: 20091030
  Receipt Date: 20091019
  Transmission Date: 20100525
  Serious: No
  Sender: FDA-Public Use
  Company Number: B0599634A

PATIENT

DRUGS (1)
  1. RELENZA [Suspect]
     Indication: INFLUENZA

REACTIONS (1)
  - DRUG EXPOSURE VIA BREAST MILK [None]
